FAERS Safety Report 4263216-3 (Version None)
Quarter: 2004Q1

REPORT INFORMATION
  Report Type: 
  Country: None (occurrence: None)
  Receive Date: 20040105
  Receipt Date: 20031229
  Transmission Date: 20041129
  Serious: Yes (Other)
  Sender: FDA-Public Use
  Company Number: IT-BRISTOL-MYERS SQUIBB COMPANY-12466710

PATIENT
  Age: 59 Year
  Sex: Female

DRUGS (2)
  1. APROVEL [Suspect]
     Indication: HYPERTENSION
     Dosage: NOV-2002 TO NOV-2003: 150 MG DAILY; NOV-2003 - ONGOING: 300 MG DAILY
     Route: 048
     Dates: start: 20021101
  2. EUTIROX [Concomitant]
     Indication: THYROIDECTOMY
     Route: 048
     Dates: start: 19960101

REACTIONS (3)
  - DRY MOUTH [None]
  - EYE REDNESS [None]
  - RETINAL DETACHMENT [None]
